FAERS Safety Report 11062216 (Version 1)
Quarter: 2015Q2

REPORT INFORMATION
  Report Type: Spontaneous
  Country: US (occurrence: US)
  Receive Date: 20150424
  Receipt Date: 20150424
  Transmission Date: 20150821
  Serious: Yes (Hospitalization, Other)
  Sender: FDA-Public Use
  Company Number: US-AMGEN-USASP2015039071

PATIENT
  Age: 67 Year
  Sex: Male

DRUGS (1)
  1. ENBREL [Suspect]
     Active Substance: ETANERCEPT
     Indication: RHEUMATOID ARTHRITIS
     Dosage: 50 MG, QWK
     Route: 065
     Dates: start: 20010501, end: 201502

REACTIONS (9)
  - Musculoskeletal pain [Recovered/Resolved]
  - Hand fracture [Recovered/Resolved]
  - Pain [Not Recovered/Not Resolved]
  - Spinal fracture [Recovered/Resolved]
  - Fatigue [Not Recovered/Not Resolved]
  - Radius fracture [Recovered/Resolved]
  - Acetabulum fracture [Recovered/Resolved]
  - Femur fracture [Recovered/Resolved]
  - Road traffic accident [Recovered/Resolved]

NARRATIVE: CASE EVENT DATE: 20140828
